FAERS Safety Report 22702639 (Version 5)
Quarter: 2023Q4

REPORT INFORMATION
  Report Type: Report from Study
  Country: US (occurrence: US)
  Receive Date: 20230713
  Receipt Date: 20231221
  Transmission Date: 20240110
  Serious: Yes (Hospitalization, Other)
  Sender: FDA-Public Use
  Company Number: US-TAKEDA-2023TUS067691

PATIENT
  Sex: Female

DRUGS (5)
  1. VEDOLIZUMAB [Suspect]
     Active Substance: VEDOLIZUMAB
     Indication: Crohn^s disease
     Dosage: 300 MILLIGRAM
     Route: 042
  2. VEDOLIZUMAB [Suspect]
     Active Substance: VEDOLIZUMAB
     Dosage: 300 MILLIGRAM, Q4WEEKS
     Route: 042
  3. VEDOLIZUMAB [Suspect]
     Active Substance: VEDOLIZUMAB
     Dosage: 300 MILLIGRAM
     Route: 042
  4. VEDOLIZUMAB [Suspect]
     Active Substance: VEDOLIZUMAB
     Dosage: 300 MILLIGRAM, Q4WEEKS
     Route: 042
  5. VEDOLIZUMAB [Suspect]
     Active Substance: VEDOLIZUMAB
     Dosage: 300 MILLIGRAM
     Route: 042

REACTIONS (27)
  - Disability [Unknown]
  - Post-traumatic stress disorder [Unknown]
  - Bipolar disorder [Unknown]
  - Anxiety [Unknown]
  - Neuropathy peripheral [Unknown]
  - Crohn^s disease [Unknown]
  - Diverticulitis [Unknown]
  - Spinal fracture [Unknown]
  - Pulmonary embolism [Unknown]
  - Chest discomfort [Unknown]
  - Malaise [Unknown]
  - Neck injury [Unknown]
  - Fibromyalgia [Unknown]
  - Intervertebral disc protrusion [Unknown]
  - Spinal stenosis [Unknown]
  - Intervertebral disc degeneration [Unknown]
  - Arthritis [Unknown]
  - Osteopenia [Unknown]
  - Limb discomfort [Unknown]
  - Migraine [Unknown]
  - Asthenia [Unknown]
  - Back injury [Unknown]
  - Loss of employment [Unknown]
  - Off label use [Unknown]
  - Cyst [Unknown]
  - Furuncle [Unknown]
  - Diarrhoea [Unknown]
